FAERS Safety Report 17736177 (Version 1)
Quarter: 2020Q2

REPORT INFORMATION
  Report Type: Spontaneous
  Country: US (occurrence: US)
  Receive Date: 20200501
  Receipt Date: 20200501
  Transmission Date: 20200714
  Serious: No
  Sender: FDA-Public Use
  Company Number: US-GLAXOSMITHKLINE-US2020072625

PATIENT
  Sex: Female

DRUGS (1)
  1. FLONASE SENSIMIST ALLERGY RELIEF [Suspect]
     Active Substance: FLUTICASONE FUROATE
     Indication: PRODUCT USED FOR UNKNOWN INDICATION
     Dosage: TWICE A DAY ONCE IN THE MORNING AND ONCE IN THE EVENING

REACTIONS (7)
  - Scab [Recovered/Resolved]
  - Drug ineffective [Unknown]
  - Nasal ulcer [Recovered/Resolved]
  - Epistaxis [Recovered/Resolved]
  - Incorrect dose administered [Unknown]
  - Adverse drug reaction [Recovered/Resolved]
  - Inappropriate schedule of product administration [Unknown]
